FAERS Safety Report 23369621 (Version 1)
Quarter: 2024Q1

REPORT INFORMATION
  Report Type: Spontaneous
  Country: None (occurrence: US)
  Receive Date: 20240105
  Receipt Date: 20240105
  Transmission Date: 20240410
  Serious: No
  Sender: FDA-Public Use
  Company Number: US-STI Pharma LLC-2150161

PATIENT
  Age: 69 Year
  Sex: Male

DRUGS (4)
  1. ETHAMBUTOL HYDROCHLORIDE [Suspect]
     Active Substance: ETHAMBUTOL HYDROCHLORIDE
  2. AZITHROMYCIN [Concomitant]
     Active Substance: AZITHROMYCIN
  3. RIFAMPIN [Concomitant]
     Active Substance: RIFAMPIN
  4. AMIKACIN [Concomitant]
     Active Substance: AMIKACIN
     Route: 045

REACTIONS (3)
  - Smear test [Unknown]
  - Culture positive [Unknown]
  - Adverse drug reaction [Unknown]
